FAERS Safety Report 8832880 (Version 1)
Quarter: 2012Q4

REPORT INFORMATION
  Report Type: Spontaneous
  Country: US (occurrence: None)
  Receive Date: 20121009
  Receipt Date: 20121009
  Transmission Date: 20130627
  Serious: Yes (Life-Threatening, Hospitalization, Disabling, Other)
  Sender: FDA-Public Use
  Company Number: None

PATIENT
  Age: 76 Year
  Sex: Male
  Weight: 90.27 kg

DRUGS (2)
  1. BACTRIM [Suspect]
     Indication: NOSE INFECTION NOS
     Dosage: 20 tabs
     Dates: start: 20120806, end: 20120829
  2. BACTRIM [Suspect]
     Indication: STAPHYLOCOCCAL INFECTION
     Dosage: 20 tabs
     Dates: start: 20120806, end: 20120829

REACTIONS (7)
  - Fatigue [None]
  - Cerebrovascular accident [None]
  - Lung infection [None]
  - Dyspnoea [None]
  - Red blood cell count decreased [None]
  - White blood cell count decreased [None]
  - Incorrect drug administration duration [None]
